FAERS Safety Report 19276754 (Version 1)
Quarter: 2021Q2

REPORT INFORMATION
  Report Type: Spontaneous
  Country: US (occurrence: US)
  Receive Date: 20210519
  Receipt Date: 20210519
  Transmission Date: 20210717
  Serious: Yes (Other)
  Sender: FDA-Public Use
  Company Number: US-FRESENIUS KABI-FK202105035

PATIENT
  Age: 19 Year
  Sex: Female

DRUGS (5)
  1. DEXRAZOXANE. [Suspect]
     Active Substance: DEXRAZOXANE
     Indication: ADRENOCORTICAL CARCINOMA
     Dosage: CHEMOTHERAPY WAS INITIATED WITH DOXORUBICIN, CISPLATIN, ETOPOSIDE AND MITOTANE AND THEN PATIENT ONLY
     Route: 065
  2. ETOPOSIDE (MANUFACTURER UNKNOWN) [Suspect]
     Active Substance: ETOPOSIDE
     Indication: ADRENOCORTICAL CARCINOMA
     Dosage: CHEMOTHERAPY WAS INITIATED WITH DOXORUBICIN, CISPLATIN, ETOPOSIDE AND MITOTANE AND THEN CHEMOTHERAPY
     Route: 065
  3. MITOTANE [Suspect]
     Active Substance: MITOTANE
     Indication: ADRENOCORTICAL CARCINOMA
     Dosage: CHEMOTHERAPY WAS INITIATED WITH DOXORUBICIN, CISPLATIN, ETOPOSIDE AND MITOTANE AND THEN CHEMOTHERAPY
     Route: 065
  4. CISPLATIN (MANUFACTURER UNKNOWN) [Suspect]
     Active Substance: CISPLATIN
     Indication: ADRENOCORTICAL CARCINOMA
     Dosage: CHEMOTHERAPY WAS INITIATED WITH DOXORUBICIN, CISPLATIN, ETOPOSIDE AND THEN CHEMOTHERAPY WAS CONTINUE
     Route: 065
  5. DOXORUBICIN (MANUFACTURER UNKNOWN) [Suspect]
     Active Substance: DOXORUBICIN
     Indication: ADRENOCORTICAL CARCINOMA
     Dosage: CHEMOTHERAPY WAS INITIATED WITH DOXORUBICIN, CISPLATIN, ETOPOSIDE AND MITOTANE AND THEN ONLY RECEIVE
     Route: 065

REACTIONS (1)
  - Cardiomyopathy [Unknown]
